FAERS Safety Report 20297229 (Version 1)
Quarter: 2022Q1

REPORT INFORMATION
  Report Type: Spontaneous
  Country: US (occurrence: None)
  Receive Date: 20220105
  Receipt Date: 20220105
  Transmission Date: 20220424
  Serious: No
  Sender: FDA-Public Use
  Company Number: US-ROCHE-2817447

PATIENT
  Age: 52 Year
  Sex: Male

DRUGS (3)
  1. HEMLIBRA [Suspect]
     Active Substance: EMICIZUMAB-KXWH
     Indication: Factor VIII deficiency
     Dosage: 105 MG/0.5 ML; DOSE: 195 MG/1.3 ML
     Route: 058
     Dates: start: 20190604
  2. HEMLIBRA [Suspect]
     Active Substance: EMICIZUMAB-KXWH
     Indication: Factor VIII deficiency
     Dosage: DOSAGE STRENGTH: 105 MG/0.7 ML
     Route: 058
     Dates: start: 20190605
  3. HEMLIBRA [Suspect]
     Active Substance: EMICIZUMAB-KXWH
     Dosage: 105 MG/0.7 ML
     Route: 058
     Dates: start: 20210721

REACTIONS (6)
  - Haemorrhage [Unknown]
  - Pain [Unknown]
  - Joint injury [Unknown]
  - Head injury [Unknown]
  - Haemorrhage [Unknown]
  - Haemorrhage [Unknown]

NARRATIVE: CASE EVENT DATE: 20210415
